FAERS Safety Report 14008334 (Version 1)
Quarter: 2017Q3

REPORT INFORMATION
  Report Type: Spontaneous
  Country: US (occurrence: None)
  Receive Date: 20170925
  Receipt Date: 20170925
  Transmission Date: 20171128
  Serious: Yes (Other)
  Sender: FDA-Public Use
  Company Number: None

PATIENT
  Age: 65 Year
  Sex: Male
  Weight: 92.99 kg

DRUGS (5)
  1. SAW PALMETTO [Concomitant]
     Active Substance: HERBALS\SAW PALMETTO
  2. VALSARTAN. [Concomitant]
     Active Substance: VALSARTAN
  3. WELCHOL [Suspect]
     Active Substance: COLESEVELAM HYDROCHLORIDE
     Indication: BLOOD CHOLESTEROL
     Dosage: FREQUENCY - 1?START DATE - 3 YEARS AGO
     Route: 048
     Dates: end: 20170917
  4. GLUCOSAMINE CHONDROITIN [Concomitant]
     Active Substance: CHONDROITIN SULFATE (BOVINE)\GLUCOSAMINE HYDROCHLORIDE
  5. MULTI VITAMIN [Concomitant]
     Active Substance: VITAMINS

REACTIONS (3)
  - Gait disturbance [None]
  - Pain [None]
  - Muscle spasms [None]

NARRATIVE: CASE EVENT DATE: 20170729
